FAERS Safety Report 11128599 (Version 2)
Quarter: 2015Q2

REPORT INFORMATION
  Report Type: Spontaneous
  Country: IT (occurrence: None)
  Receive Date: 20150519
  Receipt Date: 20150528
  Transmission Date: 20150821
  Serious: Yes (Life-Threatening, Hospitalization)
  Sender: FDA-Public Use
  Company Number: 8025260

PATIENT
  Age: 56 Year
  Sex: Female

DRUGS (1)
  1. LEVOTHYROXINE (LEVOTHYROXINE) (LEVOTHYROXINE SODIUM) [Suspect]
     Active Substance: LEVOTHYROXINE
     Indication: PRODUCT USED FOR UNKNOWN INDICATION

REACTIONS (20)
  - Candida infection [None]
  - Electrolyte imbalance [None]
  - Blood pressure decreased [None]
  - Alanine aminotransferase increased [None]
  - Vomiting [None]
  - General physical health deterioration [None]
  - Anuria [None]
  - Abdominal pain upper [None]
  - Hyperthyroidism [None]
  - Blood bilirubin increased [None]
  - Exposure via ingestion [None]
  - Hypertension [None]
  - Continuous haemodiafiltration [None]
  - Aspartate aminotransferase increased [None]
  - Intentional overdose [None]
  - Somnolence [None]
  - Renal failure [None]
  - Tachycardia [None]
  - Multi-organ failure [None]
  - Dehydration [None]
